FAERS Safety Report 25497380 (Version 1)
Quarter: 2025Q3

REPORT INFORMATION
  Report Type: Spontaneous
  Country: US (occurrence: US)
  Receive Date: 20250701
  Receipt Date: 20250701
  Transmission Date: 20251020
  Serious: No
  Sender: BRISTOL-MYERS SQUIBB COMPANY
  Company Number: US-BRISTOL-MYERS SQUIBB COMPANY-2025-092629

PATIENT
  Age: 58 Year
  Sex: Female

DRUGS (2)
  1. ORENCIA [Suspect]
     Active Substance: ABATACEPT
     Indication: Polyarthritis
     Route: 058
     Dates: start: 202012
  2. REZDIFFRA [Concomitant]
     Active Substance: RESMETIROM
     Indication: Product used for unknown indication

REACTIONS (3)
  - Joint swelling [Unknown]
  - Arthralgia [Unknown]
  - Off label use [Unknown]
